FAERS Safety Report 5975039-5 (Version None)
Quarter: 2008Q4

REPORT INFORMATION
  Report Type: 
  Country: None (occurrence: None)
  Receive Date: 20081128
  Receipt Date: 20081120
  Transmission Date: 20090506
  Serious: Yes (Death, Other)
  Sender: FDA-Public Use
  Company Number: 2008-00545

PATIENT
  Age: 60 Year
  Sex: Male
  Weight: 72 kg

DRUGS (2)
  1. VELCADE [Suspect]
     Indication: MULTIPLE MYELOMA
     Dosage: 2.4 MG, INTRAVENOUS
     Dates: start: 20070904, end: 20070911
  2. DEXAMETHASONE [Concomitant]

REACTIONS (1)
  - PLATELET COUNT DECREASED [None]
